FAERS Safety Report 7113457-2 (Version None)
Quarter: 2010Q4

REPORT INFORMATION
  Report Type: 
  Country: None (occurrence: None)
  Receive Date: 20101119
  Receipt Date: 20101108
  Transmission Date: 20110411
  Serious: No
  Sender: FDA-Public Use
  Company Number: US-PFIZER INC-2010144881

PATIENT
  Sex: Female

DRUGS (3)
  1. ADVIL [Suspect]
  2. ACETYLSALICYLIC ACID [Suspect]
  3. TYLENOL (CAPLET) [Suspect]

REACTIONS (1)
  - DRUG INTOLERANCE [None]
